FAERS Safety Report 24807284 (Version 3)
Quarter: 2025Q1

REPORT INFORMATION
  Report Type: Spontaneous
  Country: PT (occurrence: PT)
  Receive Date: 20250105
  Receipt Date: 20250113
  Transmission Date: 20250408
  Serious: Yes (Hospitalization, Other)
  Sender: AUROBINDO
  Company Number: PT-ATNAHS-ATNAHS20241201099

PATIENT
  Age: 47 Year
  Sex: Female

DRUGS (1)
  1. LISINOPRIL [Suspect]
     Active Substance: LISINOPRIL
     Indication: Hypertension
     Route: 065

REACTIONS (4)
  - Angioedema [Recovered/Resolved]
  - Orthostatic hypotension [Recovered/Resolved]
  - Dysphagia [Recovered/Resolved]
  - Drug ineffective [Unknown]
